FAERS Safety Report 16302761 (Version 1)
Quarter: 2019Q2

REPORT INFORMATION
  Report Type: Spontaneous
  Country: US (occurrence: US)
  Receive Date: 20190513
  Receipt Date: 20190513
  Transmission Date: 20190711
  Serious: Yes (Other)
  Sender: FDA-Public Use
  Company Number: US-MALLINCKRODT-T201903443

PATIENT
  Age: 72 Year
  Sex: Male

DRUGS (4)
  1. FENTANYL TRANSDERMAL SYSTEM [Suspect]
     Active Substance: FENTANYL
     Indication: BACK PAIN
     Dosage: ONE PATCH EVERY THREE DAYS
     Route: 062
     Dates: start: 20190428
  2. OXYCODONE [Suspect]
     Active Substance: OXYCODONE
     Indication: BACK PAIN
     Dosage: 30 MG, UNK
     Route: 065
  3. OXYCODONE [Suspect]
     Active Substance: OXYCODONE
     Dosage: TAKE A 1/2 TABLET THEN 4 HOURS LATER TAKE ANOTHER
     Route: 065
  4. OXYCODONE/ACETAMINOPHEN [Suspect]
     Active Substance: ACETAMINOPHEN\OXYCODONE HYDROCHLORIDE
     Indication: BACK PAIN
     Dosage: 10/325; 3 TABLETS
     Route: 065
     Dates: start: 20190429

REACTIONS (6)
  - Withdrawal syndrome [Not Recovered/Not Resolved]
  - Incorrect dose administered [Unknown]
  - Spinal nerve stimulator implantation [Unknown]
  - Pruritus [Unknown]
  - Spinal cord disorder [Unknown]
  - Drug ineffective [Unknown]

NARRATIVE: CASE EVENT DATE: 2017
